FAERS Safety Report 5819079-5 (Version None)
Quarter: 2008Q3

REPORT INFORMATION
  Report Type: 
  Country: None (occurrence: None)
  Receive Date: 20080721
  Receipt Date: 20080721
  Transmission Date: 20090109
  Serious: Yes (Other)
  Sender: FDA-Public Use
  Company Number: None

PATIENT
  Age: 43 Year
  Sex: Female
  Weight: 63.5036 kg

DRUGS (1)
  1. PIROXICAM [Suspect]
     Indication: INFLAMMATION
     Dosage: 1 CAPSULE DAILY PO
     Route: 048
     Dates: start: 20080711, end: 20080713

REACTIONS (4)
  - BACK PAIN [None]
  - RASH ERYTHEMATOUS [None]
  - RASH MORBILLIFORM [None]
  - RASH PRURITIC [None]
